FAERS Safety Report 5650624-9 (Version None)
Quarter: 2008Q1

REPORT INFORMATION
  Report Type: 
  Country: None (occurrence: None)
  Receive Date: 20080131
  Receipt Date: 20071220
  Transmission Date: 20080703
  Serious: No
  Sender: FDA-Public Use
  Company Number: US200712004532

PATIENT
  Age: 74 Year
  Sex: Male

DRUGS (8)
  1. BYETTA [Suspect]
     Indication: TYPE 2 DIABETES MELLITUS
     Dosage: 5 UG, 2/D, SUBCUTANEOUS
     Route: 058
     Dates: start: 20071101
  2. EXENATIDE 5MCG PEN, DISPOSABLE DEVICE (EXENATIDE PEN (5MCG))) PEN,DISP [Concomitant]
  3. METFORMIN HCL [Concomitant]
  4. GLIPIZIDE [Concomitant]
  5. LOVASTATIN [Concomitant]
  6. SYNTHROID [Concomitant]
  7. METOPROLOL TARTRATE [Concomitant]
  8. LISINOPRIL [Concomitant]

REACTIONS (6)
  - AURICULAR SWELLING [None]
  - ERYTHEMA [None]
  - EYE SWELLING [None]
  - INJECTION SITE PRURITUS [None]
  - RASH [None]
  - RASH GENERALISED [None]
